FAERS Safety Report 24195204 (Version 1)
Quarter: 2024Q3

REPORT INFORMATION
  Report Type: Spontaneous
  Country: FR (occurrence: FR)
  Receive Date: 20240809
  Receipt Date: 20240809
  Transmission Date: 20241017
  Serious: Yes (Hospitalization)
  Sender: TEVA
  Company Number: None

PATIENT
  Age: 73 Year
  Sex: Female
  Weight: 108.5 kg

DRUGS (13)
  1. EPIRUBICIN [Suspect]
     Active Substance: EPIRUBICIN
     Indication: Breast cancer
     Dosage: UNSPECIFIED
     Route: 042
     Dates: start: 20240704
  2. HUMALOG [Concomitant]
     Active Substance: INSULIN LISPRO
     Indication: Product used for unknown indication
     Route: 065
  3. VITAMIN K [Concomitant]
     Active Substance: PHYTONADIONE
     Indication: Product used for unknown indication
     Dosage: VITAMINE K1 CHEPLAPHARM: 10 MG/1 ML, ORAL AND INJECTABLE SOLUTION
     Route: 065
  4. PANTOPRAZOLE [Suspect]
     Active Substance: PANTOPRAZOLE
     Indication: Gastrooesophageal reflux disease
     Dosage: PANTOPRAZOLE SUN PHARMA
     Route: 042
     Dates: start: 20240709, end: 20240712
  5. CEFTRIAXONE [Concomitant]
     Active Substance: CEFTRIAXONE\CEFTRIAXONE SODIUM
     Indication: Product used for unknown indication
     Dosage: CEFTRIAXONE VIATRIS
     Route: 065
  6. HYDROXYZINE [Concomitant]
     Active Substance: HYDROXYZINE HYDROCHLORIDE
     Indication: Product used for unknown indication
     Dosage: HYDROXYZINE BLUEFISH
     Route: 065
  7. PHLOROGLUCINOL TRIMETHYLPHLOROGLUCINOL [Concomitant]
     Indication: Product used for unknown indication
     Dosage: PHLOROGLUCINOL TRIMETHYLPHLOROGLUCINOL ARROW 40 MG/0.04 MG PER 4 ML,
     Route: 065
  8. TRESIBA [Concomitant]
     Active Substance: INSULIN DEGLUDEC
     Indication: Product used for unknown indication
     Route: 065
  9. ERYTHROMYCIN [Concomitant]
     Active Substance: ERYTHROMYCIN
     Indication: Product used for unknown indication
     Dosage: ERYTHROMYCIN PANPHARMA
     Route: 065
  10. VIALEBEX [Concomitant]
     Active Substance: ALBUMIN HUMAN
     Indication: Product used for unknown indication
     Route: 065
  11. METOCLOPRAMIDE HYDROCHLORIDE [Concomitant]
     Active Substance: METOCLOPRAMIDE HYDROCHLORIDE
     Indication: Product used for unknown indication
     Dosage: 10 MG/2 ML, SOLUTION FOR INJECTION IN AMPOULE, CHLORHYDRATE DE METOCLOPRAMIDE RENAUDIN
     Route: 065
  12. CYCLOPHOSPHAMIDE [Suspect]
     Active Substance: CYCLOPHOSPHAMIDE
     Indication: Breast cancer
     Dosage: UNSPECIFIED
     Route: 042
     Dates: start: 20240704
  13. OCTREOTIDE [Concomitant]
     Active Substance: OCTREOTIDE\OCTREOTIDE ACETATE
     Indication: Product used for unknown indication
     Dosage: OCTREOTIDE ARROW 500 MICROGRAMS/1 ML
     Route: 065

REACTIONS (1)
  - Pancytopenia [Not Recovered/Not Resolved]

NARRATIVE: CASE EVENT DATE: 20240711
